FAERS Safety Report 23912354 (Version 1)
Quarter: 2024Q2

REPORT INFORMATION
  Report Type: Spontaneous
  Country: US (occurrence: US)
  Receive Date: 20240528
  Receipt Date: 20240528
  Transmission Date: 20240716
  Serious: No
  Sender: FDA-Public Use
  Company Number: US-009507513-2405USA008131

PATIENT
  Age: 49 Year
  Sex: Female

DRUGS (4)
  1. KEYTRUDA [Suspect]
     Active Substance: PEMBROLIZUMAB
     Indication: Skin angiosarcoma
  2. PAZOPANIB [Concomitant]
     Active Substance: PAZOPANIB
     Indication: Skin angiosarcoma
  3. GEMCITABINE [Concomitant]
     Active Substance: GEMCITABINE
     Indication: Skin angiosarcoma
  4. PREDNISONE [Concomitant]
     Active Substance: PREDNISONE
     Indication: Autoimmune neutropenia

REACTIONS (1)
  - Product use in unapproved indication [Unknown]
